FAERS Safety Report 6100256-3 (Version None)
Quarter: 2009Q1

REPORT INFORMATION
  Report Type: 
  Country: None (occurrence: None)
  Receive Date: 20090303
  Receipt Date: 20090219
  Transmission Date: 20090719
  Serious: Yes (Hospitalization)
  Sender: FDA-Public Use
  Company Number: FR-PFIZER INC-2009173756

PATIENT

DRUGS (1)
  1. AMLOR [Suspect]
     Indication: HYPERTENSION
     Dosage: 5 MG, ALTERNATE DAY
     Route: 048
     Dates: start: 20071220

REACTIONS (2)
  - HYPOTHERMIA [None]
  - OEDEMA [None]
